FAERS Safety Report 6030554-3 (Version None)
Quarter: 2009Q1

REPORT INFORMATION
  Report Type: 
  Country: None (occurrence: None)
  Receive Date: 20090107
  Receipt Date: 20081223
  Transmission Date: 20090719
  Serious: Yes (Death)
  Sender: FDA-Public Use
  Company Number: US-BAYER-200833520GPV

PATIENT
  Age: 51 Year
  Sex: Female

DRUGS (3)
  1. ASPIRIN [Suspect]
     Route: 048
  2. ACETAMINOPHEN [Suspect]
     Route: 065
  3. ETHANOL [Suspect]
     Route: 065

REACTIONS (8)
  - CONVULSION [None]
  - DRUG TOXICITY [None]
  - FLUSHING [None]
  - GASTROINTESTINAL SOUNDS ABNORMAL [None]
  - HYPERVENTILATION [None]
  - HYPOTENSION [None]
  - TACHYCARDIA [None]
  - TACHYPNOEA [None]
